FAERS Safety Report 10285367 (Version 1)
Quarter: 2014Q3

REPORT INFORMATION
  Report Type: Report from Study
  Country: BR (occurrence: BR)
  Receive Date: 20140708
  Receipt Date: 20140708
  Transmission Date: 20150326
  Serious: Yes (Other)
  Sender: FDA-Public Use
  Company Number: PHHY2014BR082820

PATIENT
  Sex: Male
  Weight: 65 kg

DRUGS (4)
  1. HALDOL [Suspect]
     Active Substance: HALOPERIDOL
     Indication: NERVOUSNESS
     Dosage: 35 DRP, QD (20 DROPS AT NIGHT AND 15 DROPS/ MORNING)
     Dates: start: 2006, end: 201403
  2. RITALIN [Suspect]
     Active Substance: METHYLPHENIDATE HYDROCHLORIDE
     Indication: DISTURBANCE IN ATTENTION
     Dosage: 1 DF, (1 TABLET/DAY)
     Dates: start: 2011
  3. RISPERIDONA [Concomitant]
     Active Substance: RISPERIDONE
     Indication: DISTURBANCE IN ATTENTION
     Dosage: 0.25 MG, BID (0,25MG/ NIGHT AND 0,25MG/ MORNING)
     Dates: start: 201406
  4. TOFRANIL [Concomitant]
     Active Substance: IMIPRAMINE HYDROCHLORIDE
     Dosage: 1 DF, (1 TABLET/DAY)
     Dates: start: 201405

REACTIONS (2)
  - Agitation [Unknown]
  - Asperger^s disorder [Unknown]
